FAERS Safety Report 24800100 (Version 1)
Quarter: 2025Q1

REPORT INFORMATION
  Report Type: Report from Study
  Country: US (occurrence: US)
  Receive Date: 20250102
  Receipt Date: 20250102
  Transmission Date: 20250409
  Serious: Yes (Other)
  Sender: SANDOZ
  Company Number: US-SANDOZ-SDZ2024US106185

PATIENT
  Age: 33 Year
  Sex: Female

DRUGS (2)
  1. GLATOPA [Suspect]
     Active Substance: GLATIRAMER ACETATE
     Dosage: GLATOPA 40 G/ML SYRINGE SC THREE TIMES A WEEK, Q3W
     Route: 058
     Dates: start: 20241225
  2. GLATOPA [Suspect]
     Active Substance: GLATIRAMER ACETATE
     Indication: Multiple sclerosis
     Route: 030
     Dates: start: 20241223

REACTIONS (10)
  - Injection site pain [Unknown]
  - Presyncope [Unknown]
  - Abdominal pain [Unknown]
  - Muscle rigidity [Unknown]
  - Joint swelling [Unknown]
  - Chest discomfort [Unknown]
  - Nausea [Unknown]
  - Dizziness [Unknown]
  - Anxiety [Unknown]
  - Injection site mass [Unknown]

NARRATIVE: CASE EVENT DATE: 20241225
